FAERS Safety Report 10071374 (Version 2)
Quarter: 2014Q2

REPORT INFORMATION
  Report Type: Spontaneous
  Country: JP (occurrence: JP)
  Receive Date: 20140410
  Receipt Date: 20140410
  Transmission Date: 20141212
  Serious: Yes (Hospitalization)
  Sender: FDA-Public Use
  Company Number: JP-DSJP-DSJ-2014-04751

PATIENT
  Sex: 0

DRUGS (5)
  1. OLMETEC [Suspect]
     Indication: HYPERTENSION
     Dosage: 10 MG, QD
     Route: 065
     Dates: start: 2011
  2. WARFARIN [Suspect]
     Indication: ATRIAL FIBRILLATION
     Dosage: 3.5 MG, QD
     Route: 065
     Dates: start: 20090311
  3. VASOLAN                            /00014302/ [Suspect]
     Indication: ATRIAL FIBRILLATION
     Dosage: 40 MG, TID
     Route: 065
     Dates: start: 200902
  4. PRONON [Suspect]
     Indication: ATRIAL FIBRILLATION
     Dosage: 150 MG, TID
     Route: 065
     Dates: start: 20140122
  5. ASPENON [Suspect]
     Indication: ATRIAL FIBRILLATION
     Dosage: 20 MG, BID
     Route: 065
     Dates: start: 20130424

REACTIONS (1)
  - Hypoglycaemia [Recovering/Resolving]
